FAERS Safety Report 9692295 (Version 1)
Quarter: 2013Q4

REPORT INFORMATION
  Report Type: Report from Study
  Country: US (occurrence: US)
  Receive Date: 20131118
  Receipt Date: 20131118
  Transmission Date: 20140711
  Serious: Yes (Other)
  Sender: FDA-Public Use
  Company Number: US-ROCHE-1301259

PATIENT
  Age: 15 Year
  Sex: Male
  Weight: 56.9 kg

DRUGS (1)
  1. NUTROPIN [Suspect]
     Indication: PRODUCT USED FOR UNKNOWN INDICATION
     Route: 058
     Dates: end: 20120828

REACTIONS (3)
  - Scoliosis [Unknown]
  - Insulin-like growth factor decreased [Unknown]
  - Weight decreased [Unknown]
